FAERS Safety Report 7383695-2 (Version None)
Quarter: 2011Q1

REPORT INFORMATION
  Report Type: 
  Country: None (occurrence: None)
  Receive Date: 20110330
  Receipt Date: 20110323
  Transmission Date: 20110831
  Serious: Yes (Disabling)
  Sender: FDA-Public Use
  Company Number: JP-JNJFOC-20110310540

PATIENT
  Sex: Male

DRUGS (7)
  1. NORVIR [Suspect]
     Indication: HIV INFECTION
     Route: 048
  2. INTELENCE [Suspect]
     Indication: HIV INFECTION
     Route: 048
  3. ZERIT [Concomitant]
     Indication: HIV INFECTION
     Route: 048
  4. EPIVIR [Concomitant]
     Indication: HIV INFECTION
     Route: 048
  5. VIBRAMYCIN [Concomitant]
     Indication: SYPHILIS
     Route: 048
  6. REYATAZ [Suspect]
     Indication: HIV INFECTION
     Route: 048
  7. ISENTRESS [Concomitant]
     Indication: HIV INFECTION
     Route: 048

REACTIONS (1)
  - UVEITIS [None]
